FAERS Safety Report 4954877-1 (Version None)
Quarter: 2006Q1

REPORT INFORMATION
  Report Type: 
  Country: None (occurrence: None)
  Receive Date: 20060327
  Receipt Date: 20060317
  Transmission Date: 20060701
  Serious: Yes (Hospitalization)
  Sender: FDA-Public Use
  Company Number: AU-MERCK-0603AUS00137

PATIENT
  Age: 68 Year
  Sex: Female

DRUGS (4)
  1. FOSAMAX [Suspect]
     Indication: OSTEOPOROSIS
     Route: 048
     Dates: start: 20000901
  2. ALBUTEROL SULFATE [Concomitant]
     Indication: ASTHMA
     Route: 065
  3. TIOTROPIUM BROMIDE [Concomitant]
     Indication: ASTHMA
     Route: 065
  4. FLUTICASONE PROPIONATE AND SALMETEROL XINAFOATE [Concomitant]
     Indication: ASTHMA
     Route: 065

REACTIONS (3)
  - DENTAL CARIES [None]
  - SPINAL COLUMN STENOSIS [None]
  - TOOTH DISORDER [None]
